FAERS Safety Report 11429080 (Version 1)
Quarter: 2015Q3

REPORT INFORMATION
  Report Type: Spontaneous
  Country: US (occurrence: US)
  Receive Date: 20150828
  Receipt Date: 20150828
  Transmission Date: 20151125
  Serious: No
  Sender: FDA-Public Use
  Company Number: US-ROCHE-1183268

PATIENT
  Sex: Female

DRUGS (3)
  1. PEGASYS [Suspect]
     Active Substance: PEGINTERFERON ALFA-2A
     Indication: HEPATITIS C
     Route: 065
     Dates: start: 20121031
  2. TELAPREVIR [Suspect]
     Active Substance: TELAPREVIR
     Indication: HEPATITIS C
     Route: 065
     Dates: start: 20121031
  3. RIBAVIRIN. [Suspect]
     Active Substance: RIBAVIRIN
     Indication: HEPATITIS C
     Route: 065
     Dates: start: 20121031

REACTIONS (9)
  - Rash [Unknown]
  - Chest pain [Unknown]
  - Fatigue [Unknown]
  - Loss of consciousness [Unknown]
  - Dyspnoea [Unknown]
  - Haemorrhoids [Unknown]
  - Haemoglobin abnormal [Unknown]
  - Dizziness [Unknown]
  - Abdominal pain upper [Unknown]
